FAERS Safety Report 4503765-3 (Version None)
Quarter: 2004Q4

REPORT INFORMATION
  Report Type: 
  Country: None (occurrence: None)
  Receive Date: 20041115
  Receipt Date: 20041101
  Transmission Date: 20050328
  Serious: Yes (Hospitalization)
  Sender: FDA-Public Use
  Company Number: 2004077299

PATIENT
  Age: 67 Year
  Sex: Female

DRUGS (12)
  1. AMLODIPINE [Suspect]
     Indication: ILL-DEFINED DISORDER
     Dosage: 7.5 MG (1 D), ORAL
     Route: 048
     Dates: start: 20040913
  2. LIPITOR [Suspect]
     Indication: ILL-DEFINED DISORDER
     Dosage: 10 MG (1 D), ORAL
     Route: 048
     Dates: start: 20011201
  3. FAMOTIDINE [Suspect]
     Indication: ILL-DEFINED DISORDER
     Dosage: 10 MG (1 D), ORAL
     Route: 048
     Dates: start: 20040607, end: 20040912
  4. INVESTIGATIONAL DRUG (INVESTIGATIONAL DRUG) [Suspect]
     Indication: ILL-DEFINED DISORDER
     Dosage: UNK (2 WK),
     Dates: start: 20040929, end: 20041005
  5. FERROUS FUMARATE [Concomitant]
  6. VALSARTAN (VALSARTAN) [Concomitant]
  7. ALLOPURINOL [Concomitant]
  8. CLOTIAZEPAM (CLOTIAZEPAM) [Concomitant]
  9. MECOBALAMIN (MECOBALAMIN) [Concomitant]
  10. ETHYL LOFLAZEPATE (ETHYL LOFLAZEPATE) [Concomitant]
  11. EPOETIN ALFA (EPOETIN ALFA) [Concomitant]
  12. BROTIZOLAM (BROTIZOLAM) [Concomitant]

REACTIONS (10)
  - ALANINE AMINOTRANSFERASE INCREASED [None]
  - ASPARTATE AMINOTRANSFERASE INCREASED [None]
  - BLOOD ALKALINE PHOSPHATASE INCREASED [None]
  - BLOOD PRESSURE INCREASED [None]
  - C-REACTIVE PROTEIN INCREASED [None]
  - DRUG EFFECT DECREASED [None]
  - GAMMA-GLUTAMYLTRANSFERASE INCREASED [None]
  - HEPATIC FUNCTION ABNORMAL [None]
  - LYMPHOCYTE STIMULATION TEST POSITIVE [None]
  - PYREXIA [None]
